FAERS Safety Report 18267066 (Version 1)
Quarter: 2020Q3

REPORT INFORMATION
  Report Type: Spontaneous
  Country: US (occurrence: US)
  Receive Date: 20200914
  Receipt Date: 20200914
  Transmission Date: 20201103
  Serious: No
  Sender: FDA-Public Use
  Company Number: None

PATIENT
  Age: 55 Year
  Sex: Female
  Weight: 114.75 kg

DRUGS (13)
  1. DILTIAZEM. [Concomitant]
     Active Substance: DILTIAZEM
  2. B?COMPLEX VITAMINS [Concomitant]
  3. EZETIMIBE. [Concomitant]
     Active Substance: EZETIMIBE
  4. LEVOTHYROXINE. [Concomitant]
     Active Substance: LEVOTHYROXINE
  5. GABAPENTIN. [Concomitant]
     Active Substance: GABAPENTIN
  6. LIVALO [Concomitant]
     Active Substance: PITAVASTATIN CALCIUM
  7. ESCITALOPRAM [Concomitant]
     Active Substance: ESCITALOPRAM OXALATE
  8. CEPHALEXIN. [Suspect]
     Active Substance: CEPHALEXIN
     Indication: URINARY TRACT INFECTION
     Dosage: ?          QUANTITY:1 CAPSULE(S);?
     Route: 048
     Dates: start: 20200909, end: 20200913
  9. INSULIN [Concomitant]
     Active Substance: INSULIN NOS
  10. XARELTO [Concomitant]
     Active Substance: RIVAROXABAN
  11. AMIODARONE [Concomitant]
     Active Substance: AMIODARONE
  12. CLONIDINE. [Concomitant]
     Active Substance: CLONIDINE
  13. TROSPIUM [Concomitant]
     Active Substance: TROSPIUM

REACTIONS (2)
  - Abdominal discomfort [None]
  - Malaise [None]

NARRATIVE: CASE EVENT DATE: 20200909
